FAERS Safety Report 23874630 (Version 2)
Quarter: 2024Q2

REPORT INFORMATION
  Report Type: Spontaneous
  Country: US (occurrence: US)
  Receive Date: 20240520
  Receipt Date: 20240520
  Transmission Date: 20240715
  Serious: No
  Sender: FDA-Public Use
  Company Number: US-IMP-2024000250

PATIENT
  Age: 65 Year
  Sex: Female

DRUGS (2)
  1. ILEVRO [Suspect]
     Active Substance: NEPAFENAC
     Indication: Cataract operation
     Dosage: ONE DROP OF ILEVRO DAILY IN HER LEFT EYE FOR 3 DAYS
     Dates: start: 20240422, end: 20240424
  2. ILEVRO [Suspect]
     Active Substance: NEPAFENAC
     Indication: Cataract operation
     Dosage: ONE DROP
     Dates: start: 20240426, end: 20240427

REACTIONS (3)
  - Off label use [Unknown]
  - Product use issue [Unknown]
  - Therapy change [Unknown]

NARRATIVE: CASE EVENT DATE: 20240401
